FAERS Safety Report 6298395-X (Version None)
Quarter: 2009Q3

REPORT INFORMATION
  Report Type: 
  Country: None (occurrence: None)
  Receive Date: 20090805
  Receipt Date: 20090724
  Transmission Date: 20100115
  Serious: Yes (Hospitalization, Other)
  Sender: FDA-Public Use
  Company Number: PHHY2009FR32430

PATIENT
  Sex: Female

DRUGS (16)
  1. NISISCO [Suspect]
     Dosage: UNK
     Route: 048
  2. SECTRAL [Suspect]
     Dosage: UNK
     Route: 048
  3. NITROGLYCERIN [Suspect]
     Dosage: UNK
     Route: 062
  4. DOMPERIDONE [Suspect]
     Dosage: 10 MG
     Route: 048
  5. TROSPIUM CHLORIDE [Suspect]
     Dosage: 20 MG
     Route: 048
  6. STILNOX [Suspect]
     Dosage: UNK
     Route: 048
  7. ZOLPIDEM [Suspect]
     Dosage: UNK
     Route: 048
  8. FOSAMAX [Concomitant]
  9. CACIT D3 [Concomitant]
  10. DAFALGAN [Concomitant]
  11. GAVISCON [Concomitant]
  12. ESOMEPRAZOLE MAGNESIUM [Concomitant]
  13. MYCOSTER [Concomitant]
  14. ALTIM [Concomitant]
  15. TRANSULOSE [Concomitant]
  16. KARDEGIC [Concomitant]

REACTIONS (3)
  - EXTRAPYRAMIDAL DISORDER [None]
  - FALL [None]
  - MUSCULAR WEAKNESS [None]
